FAERS Safety Report 8430690-8 (Version None)
Quarter: 2012Q2

REPORT INFORMATION
  Report Type: 
  Country: None (occurrence: None)
  Receive Date: 20120612
  Receipt Date: 20120601
  Transmission Date: 20120825
  Serious: Yes (Other)
  Sender: FDA-Public Use
  Company Number: PE-JNJFOC-20120602014

PATIENT
  Age: 41 Year
  Sex: Female

DRUGS (4)
  1. LORATADINE [Concomitant]
     Route: 065
  2. REMICADE [Suspect]
     Dosage: 10TH ADMINISTRATION OF INFLIXIMAB
     Route: 042
     Dates: start: 20120525
  3. CORTICOSTEROID [Concomitant]
     Route: 065
  4. REMICADE [Suspect]
     Indication: RHEUMATOID ARTHRITIS
     Route: 042
     Dates: start: 20100813

REACTIONS (3)
  - PRURITUS [None]
  - RASH [None]
  - RESPIRATORY DISTRESS [None]
